FAERS Safety Report 13272673 (Version 1)
Quarter: 2017Q1

REPORT INFORMATION
  Report Type: Spontaneous
  Country: US (occurrence: US)
  Receive Date: 20170227
  Receipt Date: 20170227
  Transmission Date: 20170428
  Serious: Yes (Disabling)
  Sender: FDA-Public Use
  Company Number: None

PATIENT
  Age: 53 Year
  Sex: Female
  Weight: 65.7 kg

DRUGS (6)
  1. MAGNESIUM [Concomitant]
     Active Substance: MAGNESIUM
  2. MULTIVITAMIN [Concomitant]
     Active Substance: VITAMINS
  3. VANCOMYCIN [Concomitant]
     Active Substance: VANCOMYCIN
  4. AMOXICILLIN. [Suspect]
     Active Substance: AMOXICILLIN
     Indication: SINUSITIS
     Route: 048
     Dates: start: 20161015, end: 20161020
  5. XANAX [Concomitant]
     Active Substance: ALPRAZOLAM
  6. PHENEGRAN [Concomitant]

REACTIONS (5)
  - Sinusitis [None]
  - Clostridium difficile infection [None]
  - Rash [None]
  - Neuropathy peripheral [None]
  - Psychotic disorder [None]

NARRATIVE: CASE EVENT DATE: 20161122
